FAERS Safety Report 24262965 (Version 3)
Quarter: 2024Q4

REPORT INFORMATION
  Report Type: Spontaneous
  Country: US (occurrence: US)
  Receive Date: 20240829
  Receipt Date: 20241105
  Transmission Date: 20250114
  Serious: Yes (Other)
  Sender: PFIZER
  Company Number: US-PFIZER INC-202400242998

PATIENT
  Age: 32 Year
  Sex: Male
  Weight: 82.1 kg

DRUGS (2)
  1. BENEFIX [Suspect]
     Active Substance: COAGULATION FACTOR IX RECOMBINANT HUMAN\ISOPROPYL ALCOHOL
     Indication: Factor IX deficiency
     Dosage: 3500 EVERY 3 DAYS
     Route: 042
  2. BENEFIX [Suspect]
     Active Substance: COAGULATION FACTOR IX RECOMBINANT HUMAN\ISOPROPYL ALCOHOL
     Dosage: EVERY 3 DAYS TO EVERY 2-3 WEEKS
     Route: 042
     Dates: end: 20240813

REACTIONS (1)
  - Haemarthrosis [Recovered/Resolved with Sequelae]

NARRATIVE: CASE EVENT DATE: 20240701
